FAERS Safety Report 12335364 (Version 1)
Quarter: 2016Q2

REPORT INFORMATION
  Report Type: Spontaneous
  Country: US (occurrence: US)
  Receive Date: 20160504
  Receipt Date: 20160504
  Transmission Date: 20160815
  Serious: No
  Sender: FDA-Public Use
  Company Number: US-ASTRAZENECA-2016SE32909

PATIENT
  Sex: Female

DRUGS (3)
  1. BRILINTA [Suspect]
     Active Substance: TICAGRELOR
     Indication: STENT PLACEMENT
     Route: 048
     Dates: start: 20160227
  2. RANEXA [Concomitant]
     Active Substance: RANOLAZINE
  3. EFFIANT [Concomitant]

REACTIONS (6)
  - Chromaturia [Unknown]
  - Hypertension [Unknown]
  - Dizziness [Unknown]
  - Cough [Unknown]
  - Feeling abnormal [Unknown]
  - Dyspnoea [Unknown]
